FAERS Safety Report 4292030-8 (Version None)
Quarter: 2004Q1

REPORT INFORMATION
  Report Type: 
  Country: None (occurrence: None)
  Receive Date: 20040210
  Receipt Date: 20040210
  Transmission Date: 20041129
  Serious: Yes (Hospitalization)
  Sender: FDA-Public Use
  Company Number: None

PATIENT
  Sex: Female

DRUGS (3)
  1. TAXOTERE [Suspect]
     Dates: start: 20031029
  2. PARAPLATIN [Suspect]
     Dates: start: 20031029
  3. HERCEPTIN [Suspect]
     Dates: start: 20031029

REACTIONS (7)
  - ABDOMINAL PAIN [None]
  - DIVERTICULAR PERFORATION [None]
  - IMPAIRED HEALING [None]
  - LUNG INFILTRATION [None]
  - SMALL INTESTINAL OBSTRUCTION [None]
  - WHITE BLOOD CELL COUNT DECREASED [None]
  - WOUND DEHISCENCE [None]
